FAERS Safety Report 10231160 (Version 1)
Quarter: 2014Q2

REPORT INFORMATION
  Report Type: Spontaneous
  Country: US (occurrence: None)
  Receive Date: 20140506
  Receipt Date: 20140506
  Transmission Date: 20141212
  Serious: Yes (Other)
  Sender: FDA-Public Use
  Company Number: 1190624

PATIENT
  Sex: Male

DRUGS (1)
  1. AVASTIN [Suspect]
     Indication: OFF LABEL USE
     Dosage: INTRAVITREAL  01/03/2013 - THERAPY DATES
     Dates: start: 20130103

REACTIONS (2)
  - Eye inflammation [None]
  - Product quality issue [None]
